FAERS Safety Report 14370250 (Version 1)
Quarter: 2018Q1

REPORT INFORMATION
  Report Type: Spontaneous
  Country: US (occurrence: US)
  Receive Date: 20180110
  Receipt Date: 20180110
  Transmission Date: 20180509
  Serious: No
  Sender: FDA-Public Use
  Company Number: US-TEVA-2018-US-843521

PATIENT
  Sex: Female

DRUGS (1)
  1. TEMOZOLOMIDE. [Suspect]
     Active Substance: TEMOZOLOMIDE
     Indication: SMALL CELL LUNG CANCER EXTENSIVE STAGE
     Dosage: 200 MG/M2 ON DAYS 1-5 OF A 28-DAY CYCLE.
     Route: 065

REACTIONS (3)
  - Off label use [Unknown]
  - Nausea [Unknown]
  - Fatigue [Unknown]
